FAERS Safety Report 6699060-7 (Version None)
Quarter: 2010Q2

REPORT INFORMATION
  Report Type: 
  Country: None (occurrence: None)
  Receive Date: 20100423
  Receipt Date: 20100409
  Transmission Date: 20101027
  Serious: Yes (Hospitalization)
  Sender: FDA-Public Use
  Company Number: 010363

PATIENT
  Sex: Female

DRUGS (9)
  1. CERTOLIZUMAB PEGOL (CDP870) [Suspect]
     Indication: RHEUMATOID ARTHRITIS
     Dosage: SUBCUTANEOUS
     Route: 058
     Dates: start: 20090819, end: 20100217
  2. METHOTREXATE [Concomitant]
  3. PREDNISOLONE [Concomitant]
  4. INDOMETHACIN SODIUM [Concomitant]
  5. INFLUENZA HA VACCINE [Concomitant]
  6. CELECOXIB [Concomitant]
  7. LANSOPRAZOLE [Concomitant]
  8. NOVO-ALENDRONATE [Concomitant]
  9. BUCILLAMINE [Concomitant]

REACTIONS (1)
  - BRONCHITIS [None]
